FAERS Safety Report 6118669-2 (Version None)
Quarter: 2009Q1

REPORT INFORMATION
  Report Type: 
  Country: None (occurrence: None)
  Receive Date: 20090314
  Receipt Date: 20090224
  Transmission Date: 20090719
  Serious: No
  Sender: FDA-Public Use
  Company Number: US-ABBOTT-09P-163-0559444-00

PATIENT
  Sex: Male

DRUGS (2)
  1. HUMIRA [Suspect]
     Indication: RHEUMATOID ARTHRITIS
     Dates: start: 20080401, end: 20090121
  2. METHOTREXATE [Concomitant]
     Indication: DRUG USE FOR UNKNOWN INDICATION
     Dosage: WAS TAKING 4 PILLS, UNKNOWN FREQUENCY
     Route: 048

REACTIONS (8)
  - BACK PAIN [None]
  - FATIGUE [None]
  - LOWER RESPIRATORY TRACT INFECTION [None]
  - MIDDLE INSOMNIA [None]
  - MUSCULOSKELETAL CHEST PAIN [None]
  - NODULE ON EXTREMITY [None]
  - RESPIRATORY TRACT CONGESTION [None]
  - SINUS CONGESTION [None]
